FAERS Safety Report 13899147 (Version 1)
Quarter: 2017Q3

REPORT INFORMATION
  Report Type: Spontaneous
  Country: US (occurrence: US)
  Receive Date: 20170823
  Receipt Date: 20170823
  Transmission Date: 20171127
  Serious: No
  Sender: FDA-Public Use
  Company Number: US-ACTELION-A-US2017-158492

PATIENT
  Age: 49 Year
  Sex: Female

DRUGS (13)
  1. LISINOPRIL. [Concomitant]
     Active Substance: LISINOPRIL
  2. CELLCEPT [Concomitant]
     Active Substance: MYCOPHENOLATE MOFETIL\MYCOPHENOLATE MOFETIL HYDROCHLORIDE
  3. OPSUMIT [Suspect]
     Active Substance: MACITENTAN
     Indication: PULMONARY ARTERIAL HYPERTENSION
     Dosage: 10 MG, QD
     Route: 048
     Dates: start: 20160801
  4. SPIRONOLACTONE. [Concomitant]
     Active Substance: SPIRONOLACTONE
  5. CALCIUM [Concomitant]
     Active Substance: CALCIUM
  6. PREDNISONE. [Concomitant]
     Active Substance: PREDNISONE
  7. PLAQUENIL [Concomitant]
     Active Substance: HYDROXYCHLOROQUINE SULFATE
  8. LORAZEPAM. [Concomitant]
     Active Substance: LORAZEPAM
  9. NIFEDIPINE. [Concomitant]
     Active Substance: NIFEDIPINE
  10. THEO-24 [Concomitant]
     Active Substance: THEOPHYLLINE ANHYDROUS
  11. LASIX [Concomitant]
     Active Substance: FUROSEMIDE
  12. ATENOLOL. [Concomitant]
     Active Substance: ATENOLOL
  13. OXYGEN. [Concomitant]
     Active Substance: OXYGEN

REACTIONS (2)
  - No adverse event [Unknown]
  - Extra dose administered [Unknown]

NARRATIVE: CASE EVENT DATE: 20170817
